FAERS Safety Report 25419348 (Version 2)
Quarter: 2025Q2

REPORT INFORMATION
  Report Type: Spontaneous
  Country: CN (occurrence: CN)
  Receive Date: 20250610
  Receipt Date: 20250616
  Transmission Date: 20250717
  Serious: Yes (Life-Threatening, Hospitalization, Other)
  Sender: PFIZER
  Company Number: CN-MLMSERVICE-20250604-PI524827-00232-3

PATIENT
  Age: 44 Year
  Sex: Female

DRUGS (4)
  1. METHYLPREDNISOLONE [Suspect]
     Active Substance: METHYLPREDNISOLONE
     Indication: Uveitis
     Dosage: 16 MG, QD (PREADMISSION)
  2. METHOTREXATE SODIUM [Suspect]
     Active Substance: METHOTREXATE SODIUM
     Indication: Uveitis
     Dosage: 12.5 MG, WEEKLY (QW)
  3. MYCOPHENOLATE MOFETIL [Suspect]
     Active Substance: MYCOPHENOLATE MOFETIL
     Indication: Uveitis
     Dosage: 6 DF, 1X/DAY (6 PILLS QD)
     Route: 048
  4. ADALIMUMAB [Suspect]
     Active Substance: ADALIMUMAB
     Indication: Uveitis

REACTIONS (12)
  - COVID-19 pneumonia [Recovering/Resolving]
  - Pneumocystis jirovecii pneumonia [Unknown]
  - Pneumonia bacterial [Recovering/Resolving]
  - Pneumonia cytomegaloviral [Recovering/Resolving]
  - Klebsiella infection [Recovering/Resolving]
  - Pneumonia acinetobacter [Recovering/Resolving]
  - Respiratory failure [Recovering/Resolving]
  - Bronchopulmonary aspergillosis [Recovering/Resolving]
  - Liver function test abnormal [Recovered/Resolved]
  - Penicillium infection [Recovering/Resolving]
  - Bronchiectasis [Recovering/Resolving]
  - Off label use [Unknown]

NARRATIVE: CASE EVENT DATE: 20230601
